FAERS Safety Report 8077279-0 (Version None)
Quarter: 2012Q1

REPORT INFORMATION
  Report Type: 
  Country: None (occurrence: None)
  Receive Date: 20120127
  Receipt Date: 20120117
  Transmission Date: 20120608
  Serious: Yes (Death)
  Sender: FDA-Public Use
  Company Number: US-ACTELION-A-US2012-59816

PATIENT
  Sex: Female
  Weight: 114 kg

DRUGS (12)
  1. LASIX [Concomitant]
  2. REVATIO [Concomitant]
     Dosage: UNK
     Dates: start: 20040701
  3. DILTIAZEM HCL [Concomitant]
  4. DIGOXIN [Concomitant]
  5. EPOPROSTENOL SODIUM [Suspect]
     Indication: PULMONARY ARTERIAL HYPERTENSION
     Dosage: 65 NG/KG, PER MIN
     Route: 042
     Dates: start: 20100803
  6. COUMADIN [Concomitant]
  7. PAROXETINE [Concomitant]
  8. POTASSIUM CHLORIDE [Concomitant]
  9. LOVASTATIN [Concomitant]
  10. OXYGEN [Concomitant]
  11. PRAVASTATIN [Concomitant]
  12. LETAIRIS [Concomitant]

REACTIONS (5)
  - SUDDEN DEATH [None]
  - DYSPNOEA EXERTIONAL [None]
  - FATIGUE [None]
  - VITAL CAPACITY DECREASED [None]
  - HYPOXIA [None]
